FAERS Safety Report 22292493 (Version 1)
Quarter: 2023Q2

REPORT INFORMATION
  Report Type: Other
  Country: TW (occurrence: None)
  Receive Date: 20230508
  Receipt Date: 20230508
  Transmission Date: 20230721
  Serious: Yes (Other)
  Sender: FDA-Public Use
  Company Number: TW-ROCHE-2936891

PATIENT
  Age: 62 Year
  Sex: Female

DRUGS (1)
  1. AVASTIN [Suspect]
     Active Substance: BEVACIZUMAB
     Indication: Ovarian cancer
     Route: 065
     Dates: start: 202105

REACTIONS (3)
  - Protein urine present [Not Recovered/Not Resolved]
  - Pain [Unknown]
  - Renal impairment [Unknown]

NARRATIVE: CASE EVENT DATE: 20210501
